FAERS Safety Report 4576357-8 (Version None)
Quarter: 2005Q1

REPORT INFORMATION
  Report Type: 
  Country: None (occurrence: None)
  Receive Date: 20050207
  Receipt Date: 20050125
  Transmission Date: 20050727
  Serious: Yes (Hospitalization)
  Sender: FDA-Public Use
  Company Number: HQWYE943728JAN05

PATIENT
  Age: 67 Year
  Sex: Male

DRUGS (1)
  1. DIAMOX [Suspect]
     Dosage: 250 MG 1 X PER 1 DAY, ORAL
     Route: 048

REACTIONS (3)
  - DEEP VEIN THROMBOSIS [None]
  - PULMONARY EMBOLISM [None]
  - UNEVALUABLE EVENT [None]
